FAERS Safety Report 7677660-5 (Version None)
Quarter: 2011Q3

REPORT INFORMATION
  Report Type: 
  Country: None (occurrence: None)
  Receive Date: 20110811
  Receipt Date: 20110803
  Transmission Date: 20111222
  Serious: Yes (Hospitalization)
  Sender: FDA-Public Use
  Company Number: PHHY2011FR71293

PATIENT
  Sex: Female

DRUGS (12)
  1. ZADITEN [Suspect]
     Dosage: 1 DF, UNK
     Route: 048
     Dates: start: 20080101, end: 20100227
  2. ACETAMINOPHEN AND TRAMADOL HCL [Suspect]
     Indication: PAIN
     Dosage: 1 DF, TID
     Route: 048
     Dates: start: 20090919, end: 20100227
  3. ACTONEL [Concomitant]
  4. OXAZEPAM [Concomitant]
  5. RABEPRAZOLE SODIUM [Suspect]
     Dosage: 10 MG, UNK
     Route: 048
     Dates: end: 20100227
  6. RABEPRAZOLE SODIUM [Suspect]
     Dates: start: 20100305
  7. ANAFRANIL [Concomitant]
  8. STEROGYL [Concomitant]
  9. ATACAND [Concomitant]
  10. CORDARONE [Concomitant]
  11. SERMION [Suspect]
     Dosage: UNK UKN, UNK
     Route: 048
     Dates: end: 20100227
  12. EUPHYLLINE [Concomitant]

REACTIONS (1)
  - HALLUCINATION, VISUAL [None]
